FAERS Safety Report 9541891 (Version 1)
Quarter: 2013Q3

REPORT INFORMATION
  Report Type: Spontaneous
  Country: US (occurrence: None)
  Receive Date: 20130919
  Receipt Date: 20130919
  Transmission Date: 20140515
  Serious: Yes (Disabling, Other)
  Sender: FDA-Public Use
  Company Number: None

PATIENT
  Age: 36 Year
  Sex: Female
  Weight: 58.51 kg

DRUGS (8)
  1. COPAXONE [Suspect]
     Indication: MULTIPLE SCLEROSIS
     Dosage: 1 PREFILLED SYRINGE, ONCE A DAY, BY INJECTION
     Dates: start: 201005, end: 20130720
  2. TOPIRAMATE [Concomitant]
  3. BACLOFEN [Concomitant]
  4. TAMSULOSIN HCL [Concomitant]
  5. PHENOBARNITAL [Concomitant]
  6. CYMBALTA [Concomitant]
  7. FISH OIL [Concomitant]
  8. VITAMIN D [Concomitant]

REACTIONS (4)
  - Periarthritis [None]
  - Arthralgia [None]
  - Muscle tightness [None]
  - Abasia [None]
